FAERS Safety Report 20232128 (Version 1)
Quarter: 2021Q4

REPORT INFORMATION
  Report Type: Report from Study
  Country: JP (occurrence: None)
  Receive Date: 20211227
  Receipt Date: 20211227
  Transmission Date: 20220304
  Serious: Yes (Other)
  Sender: FDA-Public Use
  Company Number: JP-Merck Healthcare KGaA-9288704

PATIENT
  Age: 83 Year
  Sex: Male

DRUGS (1)
  1. TEPMETKO [Suspect]
     Active Substance: TEPOTINIB HYDROCHLORIDE
     Indication: Lung adenocarcinoma
     Route: 048

REACTIONS (2)
  - Renal impairment [Unknown]
  - Oedema [Unknown]
